FAERS Safety Report 9467375 (Version 1)
Quarter: 2013Q3

REPORT INFORMATION
  Report Type: Spontaneous
  Country: US (occurrence: None)
  Receive Date: 20130819
  Receipt Date: 20130819
  Transmission Date: 20140515
  Serious: Yes (Hospitalization)
  Sender: FDA-Public Use
  Company Number: None

PATIENT
  Age: 78 Year
  Sex: Male
  Weight: 115 kg

DRUGS (1)
  1. ENOXAPARIN (GENERIC) [Suspect]
     Indication: ATRIAL FIBRILLATION
     Dates: start: 20130728, end: 20130801

REACTIONS (5)
  - Haemoptysis [None]
  - Epistaxis [None]
  - International normalised ratio decreased [None]
  - Large intestine polyp [None]
  - Gastric haemorrhage [None]
